FAERS Safety Report 7025029-9 (Version None)
Quarter: 2010Q4

REPORT INFORMATION
  Report Type: 
  Country: None (occurrence: None)
  Receive Date: 20101001
  Receipt Date: 20100921
  Transmission Date: 20110411
  Serious: Yes (Hospitalization, Other)
  Sender: FDA-Public Use
  Company Number: US-ABBOTT-10P-163-0672212-00

PATIENT
  Sex: Female
  Weight: 49.4 kg

DRUGS (14)
  1. SYNTHROID [Suspect]
     Indication: THYROIDECTOMY
     Route: 048
     Dates: start: 20040101
  2. SYNTHROID [Suspect]
     Route: 065
     Dates: start: 20091201
  3. AZULFIDINE [Suspect]
     Indication: COLITIS ULCERATIVE
  4. SULFASALAZINE [Suspect]
     Indication: COLITIS ULCERATIVE
     Dates: end: 20100601
  5. SULFASALAZINE [Suspect]
  6. FLAGYL [Suspect]
     Indication: PRODUCT USED FOR UNKNOWN INDICATION
  7. FLAGYL [Suspect]
  8. LISINOPRIL [Suspect]
     Indication: PRODUCT USED FOR UNKNOWN INDICATION
     Route: 048
     Dates: start: 20100101
  9. CARDIZEM [Suspect]
     Indication: ATRIAL FIBRILLATION
     Dates: start: 20100101
  10. DIGOXIN [Suspect]
     Indication: ATRIAL FIBRILLATION
     Route: 048
     Dates: start: 20100101
  11. AMIODARONE [Suspect]
     Indication: ATRIAL FIBRILLATION
     Route: 042
     Dates: start: 20100101
  12. PREDNISONE [Suspect]
     Indication: POLYMYALGIA RHEUMATICA
  13. PREDNISONE [Suspect]
     Indication: COLITIS ULCERATIVE
  14. MACROBID [Suspect]
     Indication: SEPSIS
     Dates: start: 20100101

REACTIONS (23)
  - ASTHENIA [None]
  - ATRIAL FIBRILLATION [None]
  - BLOOD POTASSIUM DECREASED [None]
  - BONE DISORDER [None]
  - DEAFNESS [None]
  - DECREASED APPETITE [None]
  - DEPRESSION [None]
  - DIZZINESS [None]
  - DRUG HYPERSENSITIVITY [None]
  - DRUG INTOLERANCE [None]
  - MALAISE [None]
  - MOOD ALTERED [None]
  - MUSCULAR WEAKNESS [None]
  - NEUROPATHY PERIPHERAL [None]
  - OSTEOPOROSIS [None]
  - PAIN [None]
  - POLYMYALGIA RHEUMATICA [None]
  - SEPSIS [None]
  - SURGERY [None]
  - THYROIDECTOMY [None]
  - TOOTH DISORDER [None]
  - VISION BLURRED [None]
  - WEIGHT ABNORMAL [None]
